FAERS Safety Report 8606314-3 (Version None)
Quarter: 2012Q3

REPORT INFORMATION
  Report Type: 
  Country: None (occurrence: None)
  Receive Date: 20120820
  Receipt Date: 20120809
  Transmission Date: 20120928
  Serious: Yes (Hospitalization)
  Sender: FDA-Public Use
  Company Number: ES-ASTRAZENECA-2012SE56479

PATIENT
  Age: 38 Year
  Sex: Male

DRUGS (3)
  1. DEPAKENE [Suspect]
     Route: 048
     Dates: start: 20120712, end: 20120712
  2. SEROQUEL XR [Suspect]
     Indication: MANIA
     Route: 048
     Dates: start: 20120704, end: 20120717
  3. DEPAKENE [Suspect]
     Indication: EPILEPSY
     Route: 048
     Dates: end: 20120711

REACTIONS (3)
  - CONSTIPATION [None]
  - PLEURAL EFFUSION [None]
  - OEDEMA PERIPHERAL [None]
